FAERS Safety Report 9370001 (Version 1)
Quarter: 2013Q2

REPORT INFORMATION
  Report Type: Spontaneous
  Country: US (occurrence: US)
  Receive Date: 20130626
  Receipt Date: 20130626
  Transmission Date: 20140414
  Serious: No
  Sender: FDA-Public Use
  Company Number: US-MYLANLABS-2013S1003342

PATIENT
  Age: 51 Year
  Sex: Female
  Weight: 56.7 kg

DRUGS (3)
  1. METHOTREXATE TABLETS, USP [Suspect]
     Indication: PRODUCT USED FOR UNKNOWN INDICATION
     Route: 048
     Dates: start: 201203
  2. XANAX [Concomitant]
     Indication: ANXIETY
     Dosage: 1/2 TABLET EVERY NIGHT FOR ANXIETY AND INSOMNIA
  3. AMPYRA [Concomitant]
     Indication: GAIT DISTURBANCE
     Route: 048
     Dates: start: 20121019

REACTIONS (1)
  - Feeling abnormal [Not Recovered/Not Resolved]
